FAERS Safety Report 8326658-2 (Version None)
Quarter: 2012Q2

REPORT INFORMATION
  Report Type: 
  Country: None (occurrence: None)
  Receive Date: 20120501
  Receipt Date: 20120423
  Transmission Date: 20120825
  Serious: Yes (Other)
  Sender: FDA-Public Use
  Company Number: US-JNJFOC-20120411025

PATIENT
  Sex: Female
  Weight: 97.52 kg

DRUGS (2)
  1. FLONASE [Concomitant]
     Indication: SINUSITIS
     Route: 055
     Dates: start: 20120301
  2. XARELTO [Suspect]
     Indication: ATRIAL FIBRILLATION
     Route: 048
     Dates: start: 20120409, end: 20120421

REACTIONS (3)
  - THERAPY CESSATION [None]
  - HAEMOPTYSIS [None]
  - DRUG DOSE OMISSION [None]
